FAERS Safety Report 18986234 (Version 1)
Quarter: 2021Q1

REPORT INFORMATION
  Report Type: Spontaneous
  Country: US (occurrence: US)
  Receive Date: 20210309
  Receipt Date: 20210309
  Transmission Date: 20210420
  Serious: Yes (Hospitalization)
  Sender: FDA-Public Use
  Company Number: US-PFIZER INC-2021184838

PATIENT
  Age: 69 Year
  Sex: Male

DRUGS (11)
  1. DAPTOMYCIN. [Interacting]
     Active Substance: DAPTOMYCIN
     Indication: EVIDENCE BASED TREATMENT
     Dosage: 900 MG, DAILY (8 MG/KG WITH WEIGHT OF 133 KG)
     Route: 042
  2. VANCOMYCIN HCL [Suspect]
     Active Substance: VANCOMYCIN HYDROCHLORIDE
     Indication: INFECTION
  3. SIMVASTATIN. [Interacting]
     Active Substance: SIMVASTATIN
     Indication: INFECTION
  4. CEFEPIME HCL [Suspect]
     Active Substance: CEFEPIME HYDROCHLORIDE
     Indication: EVIDENCE BASED TREATMENT
     Dosage: UNK
  5. CEFEPIME HCL [Suspect]
     Active Substance: CEFEPIME HYDROCHLORIDE
     Indication: INFECTION
  6. GENTAMICIN SULFATE. [Suspect]
     Active Substance: GENTAMICIN SULFATE
     Indication: EVIDENCE BASED TREATMENT
     Dosage: UNK
  7. GENTAMICIN SULFATE. [Suspect]
     Active Substance: GENTAMICIN SULFATE
     Indication: INFECTION
  8. LEVOFLOXACIN. [Concomitant]
     Active Substance: LEVOFLOXACIN
     Dosage: 750 MG, DAILY
     Route: 048
  9. DAPTOMYCIN. [Interacting]
     Active Substance: DAPTOMYCIN
     Indication: INFECTION
     Dosage: 680 MG, DAILY (680 MG I.V. DAILY (6 MG/KG))
     Route: 042
  10. VANCOMYCIN HCL [Suspect]
     Active Substance: VANCOMYCIN HYDROCHLORIDE
     Indication: EVIDENCE BASED TREATMENT
     Dosage: UNK
  11. SIMVASTATIN. [Interacting]
     Active Substance: SIMVASTATIN
     Indication: EVIDENCE BASED TREATMENT
     Dosage: 40 MG, DAILY

REACTIONS (3)
  - Drug interaction [Unknown]
  - Drug hypersensitivity [Unknown]
  - Rhabdomyolysis [Recovered/Resolved]
